FAERS Safety Report 14344236 (Version 1)
Quarter: 2018Q1

REPORT INFORMATION
  Report Type: Spontaneous
  Country: US (occurrence: US)
  Receive Date: 20180102
  Receipt Date: 20180102
  Transmission Date: 20180509
  Serious: No
  Sender: FDA-Public Use
  Company Number: US-VIFOR (INTERNATIONAL) INC.-VIT-2017-13929

PATIENT
  Sex: Male

DRUGS (14)
  1. ATORVASTATIN CALCIUM. [Concomitant]
     Active Substance: ATORVASTATIN CALCIUM
  2. ASCORBIC ACID~~XANTOFYL~~ZEAXANTHIN~~ZINC OXIDE~~CUPRIC OXIDE~~DL-ALPHA TOCOPHERYL ACETATE [Concomitant]
  3. ALLOPURINOL. [Concomitant]
     Active Substance: ALLOPURINOL
  4. FUROSEMIDE. [Concomitant]
     Active Substance: FUROSEMIDE
  5. SPIRONOLACTONE. [Concomitant]
     Active Substance: SPIRONOLACTONE
  6. LOSARTAN POTASSIUM. [Concomitant]
     Active Substance: LOSARTAN POTASSIUM
  7. TACROLIMUS. [Concomitant]
     Active Substance: TACROLIMUS
  8. TOPROL XL [Concomitant]
     Active Substance: METOPROLOL SUCCINATE
  9. AMIODARONE HYDROCHLORIDE. [Concomitant]
     Active Substance: AMIODARONE HYDROCHLORIDE
  10. LUTEIN [Concomitant]
     Active Substance: LUTEIN
  11. ERGOCALCIFEROL. [Concomitant]
     Active Substance: ERGOCALCIFEROL
  12. VELTASSA [Suspect]
     Active Substance: PATIROMER
     Indication: HYPERKALAEMIA
     Route: 048
     Dates: start: 20171129
  13. ACETYLSALICYLIC ACID [Concomitant]
     Active Substance: ASPIRIN
  14. BIFIDOBACTERIUM LACTIS [Concomitant]
     Active Substance: BIFIDOBACTERIUM ANIMALIS LACTIS

REACTIONS (1)
  - Flatulence [Unknown]

NARRATIVE: CASE EVENT DATE: 2017
